FAERS Safety Report 10451561 (Version 1)
Quarter: 2014Q3

REPORT INFORMATION
  Report Type: Spontaneous
  Country: US (occurrence: US)
  Receive Date: 20140914
  Receipt Date: 20140914
  Transmission Date: 20150326
  Serious: No
  Sender: FDA-Public Use
  Company Number: US-009507513-1409USA002106

PATIENT
  Sex: Male

DRUGS (3)
  1. XOPENEX [Concomitant]
     Active Substance: LEVALBUTEROL HYDROCHLORIDE
  2. PROAIR (FLUTICASONE PROPIONATE) [Concomitant]
     Active Substance: FLUTICASONE PROPIONATE
  3. ASMANEX [Suspect]
     Active Substance: MOMETASONE FUROATE
     Dosage: DOSE/FREQUECY: 2 PUFFS TWICE DAILY
     Route: 055
     Dates: start: 2012

REACTIONS (7)
  - Memory impairment [Unknown]
  - Drug dose omission [Unknown]
  - Nervous system disorder [Unknown]
  - No adverse event [Unknown]
  - Visual impairment [Unknown]
  - Product odour abnormal [Unknown]
  - Lung disorder [Unknown]
